FAERS Safety Report 4267037-7 (Version None)
Quarter: 2004Q1

REPORT INFORMATION
  Report Type: 
  Country: None (occurrence: None)
  Receive Date: 20040107
  Receipt Date: 20031223
  Transmission Date: 20041129
  Serious: No
  Sender: FDA-Public Use
  Company Number: 30017600-NA01-1

PATIENT
  Sex: Male
  Weight: 68.0396 kg

DRUGS (9)
  1. DIANEAL PD-2 W/ DEXTROSE 2.5% [Suspect]
     Indication: PERITONEAL DIALYSIS
     Dosage: UNK, INTRAPERITONEAL (IP)
     Route: 033
  2. NORVASC [Concomitant]
  3. LEVOTHROID [Concomitant]
  4. ATENOLOL [Concomitant]
  5. NEPHROVITE [Concomitant]
  6. EPOGEN [Concomitant]
  7. MOTRIN [Concomitant]
  8. LOVASTATIN [Concomitant]
  9. ASPIRIN [Concomitant]

REACTIONS (1)
  - PERITONITIS [None]
